FAERS Safety Report 13866676 (Version 1)
Quarter: 2017Q3

REPORT INFORMATION
  Report Type: Spontaneous
  Country: US (occurrence: US)
  Receive Date: 20170814
  Receipt Date: 20170814
  Transmission Date: 20171127
  Serious: No
  Sender: FDA-Public Use
  Company Number: US-ROCHE-1867420

PATIENT
  Age: 49 Year
  Sex: Male

DRUGS (1)
  1. ACTEMRA [Suspect]
     Active Substance: TOCILIZUMAB
     Indication: PRODUCT USED FOR UNKNOWN INDICATION
     Dosage: EVERY OTHER WEEK
     Route: 058

REACTIONS (6)
  - Vision blurred [Unknown]
  - Diarrhoea [Unknown]
  - Spinal pain [Unknown]
  - Syncope [Unknown]
  - Diplopia [Unknown]
  - Dizziness [Unknown]
